FAERS Safety Report 15056909 (Version 2)
Quarter: 2018Q3

REPORT INFORMATION
  Report Type: Spontaneous
  Country: US (occurrence: US)
  Receive Date: 20180624
  Receipt Date: 20180731
  Transmission Date: 20181010
  Serious: Yes (Other)
  Sender: FDA-Public Use
  Company Number: US-BEH-2018091896

PATIENT
  Age: 58 Year
  Sex: Female

DRUGS (2)
  1. PRIVIGEN [Suspect]
     Active Substance: HUMAN IMMUNOGLOBULIN G
     Indication: DERMATOMYOSITIS
     Dosage: 40 G, ON DAYS 1?3, EVERY 4 WEEKS
     Route: 042
     Dates: start: 20180103, end: 20180314
  2. PRIVIGEN [Suspect]
     Active Substance: HUMAN IMMUNOGLOBULIN G
     Indication: POLYMYOSITIS
     Dosage: 30 G, DAY 4 EVERY 4 WEEKS
     Route: 042
     Dates: start: 20180103, end: 20180314

REACTIONS (1)
  - Device related thrombosis [Recovering/Resolving]

NARRATIVE: CASE EVENT DATE: 20180314
